FAERS Safety Report 9022050 (Version 1)
Quarter: 2013Q1

REPORT INFORMATION
  Report Type: Spontaneous
  Country: US (occurrence: US)
  Receive Date: 20130118
  Receipt Date: 20130118
  Transmission Date: 20140127
  Serious: Yes (Hospitalization)
  Sender: FDA-Public Use
  Company Number: US-SANOFI-AVENTIS-2012SA058545

PATIENT
  Age: 59 Year
  Sex: Female
  Weight: 67.5 kg

DRUGS (5)
  1. FUROSEMIDE [Suspect]
     Indication: PRODUCT USED FOR UNKNOWN INDICATION
     Route: 065
  2. VELCADE [Suspect]
     Indication: AMYLOIDOSIS
     Route: 065
     Dates: start: 20120709, end: 20120712
  3. DEXAMETHASONE [Suspect]
     Indication: AMYLOIDOSIS
     Route: 048
     Dates: start: 20120709, end: 20120712
  4. ALDACTONE [Suspect]
     Indication: PRODUCT USED FOR UNKNOWN INDICATION
  5. MELPHALAN [Concomitant]
     Indication: AMYLOIDOSIS
     Route: 048
     Dates: start: 20120709, end: 20120712

REACTIONS (2)
  - Hyponatraemia [Recovered/Resolved with Sequelae]
  - Dehydration [Recovered/Resolved with Sequelae]
